FAERS Safety Report 9641830 (Version 1)
Quarter: 2013Q4

REPORT INFORMATION
  Report Type: Spontaneous
  Country: IT (occurrence: None)
  Receive Date: 20131021
  Receipt Date: 20131021
  Transmission Date: 20140711
  Serious: Yes (Other)
  Sender: FDA-Public Use
  Company Number: IPC201310-000397

PATIENT
  Age: 32 Year
  Sex: Female
  Weight: 50 kg

DRUGS (3)
  1. TRAMADOL [Suspect]
     Indication: ABDOMINAL PAIN
     Dosage: DOSE GRADUALLY INCREASED
  2. CITALOPRAM [Suspect]
     Dosage: 20 MG, 1 TABLET IN THE MORNING
  3. DIAZEPAM [Suspect]
     Dosage: AS NEEDED, PO
     Route: 048

REACTIONS (22)
  - Constipation [None]
  - Urinary retention [None]
  - Fatigue [None]
  - Decreased appetite [None]
  - Insomnia [None]
  - Tachycardia [None]
  - Drug abuse [None]
  - Drug withdrawal syndrome [None]
  - Depression [None]
  - Anxiety [None]
  - Nervousness [None]
  - Abdominal pain [None]
  - Agitation [None]
  - Asthenia [None]
  - Headache [None]
  - Hyperhidrosis [None]
  - Tremor [None]
  - Flushing [None]
  - Nausea [None]
  - Weight decreased [None]
  - Transplant [None]
  - Family stress [None]
